FAERS Safety Report 4646674-1 (Version None)
Quarter: 2005Q2

REPORT INFORMATION
  Report Type: 
  Country: None (occurrence: None)
  Receive Date: 20050427
  Receipt Date: 20050420
  Transmission Date: 20051028
  Serious: Yes (Other)
  Sender: FDA-Public Use
  Company Number: PHEH2005US04600

PATIENT
  Age: 54 Year
  Sex: Female

DRUGS (1)
  1. MIACALCIN [Suspect]
     Indication: OSTEOPOROSIS
     Dosage: 200 IU, QD
     Route: 045
     Dates: start: 20010101

REACTIONS (4)
  - CATARACT [None]
  - CATARACT OPERATION [None]
  - EPISTAXIS [None]
  - NASAL DISCOMFORT [None]
